FAERS Safety Report 9890695 (Version 2)
Quarter: 2014Q2

REPORT INFORMATION
  Report Type: Spontaneous
  Country: US (occurrence: US)
  Receive Date: 20140212
  Receipt Date: 20140403
  Transmission Date: 20141212
  Serious: Yes (Other)
  Sender: FDA-Public Use
  Company Number: US-SA-2014SA016983

PATIENT
  Age: 82 Year
  Sex: Female

DRUGS (3)
  1. LANTUS SOLOSTAR [Suspect]
     Indication: DIABETES MELLITUS
     Dosage: DOSE:15 UNIT(S)
     Route: 058
     Dates: start: 20140110, end: 20140318
  2. AMARYL [Suspect]
     Route: 048
  3. SOLOSTAR [Concomitant]
     Indication: DIABETES MELLITUS
     Dates: start: 20140110

REACTIONS (5)
  - Macular degeneration [Unknown]
  - Visual impairment [Unknown]
  - Adverse drug reaction [Unknown]
  - Underdose [Unknown]
  - Drug dose omission [Unknown]
